FAERS Safety Report 21657381 (Version 2)
Quarter: 2022Q4

REPORT INFORMATION
  Report Type: Spontaneous
  Country: US (occurrence: US)
  Receive Date: 20221129
  Receipt Date: 20221212
  Transmission Date: 20230113
  Serious: Yes (Life-Threatening, Hospitalization, Other)
  Sender: FDA-Public Use
  Company Number: US-PFIZER INC-PV202200110198

PATIENT
  Age: 69 Year
  Sex: Male

DRUGS (1)
  1. PROPOFOL [Suspect]
     Active Substance: PROPOFOL
     Indication: Sedation
     Dosage: GREATER THAN 25 MCG/KG/HR, FOR 1 WEEK

REACTIONS (2)
  - Propofol infusion syndrome [Not Recovered/Not Resolved]
  - Hyperlipidaemia [Unknown]
